FAERS Safety Report 20565738 (Version 1)
Quarter: 2022Q1

REPORT INFORMATION
  Report Type: Spontaneous
  Country: US (occurrence: US)
  Receive Date: 20220308
  Receipt Date: 20220308
  Transmission Date: 20220423
  Serious: Yes (Other)
  Sender: FDA-Public Use
  Company Number: US-SA-SAC20220303001066

PATIENT
  Age: 52 Year
  Sex: Male

DRUGS (1)
  1. ZANTAC [Suspect]
     Active Substance: RANITIDINE HYDROCHLORIDE
     Indication: Gastric ulcer
     Dosage: UNK, QD
     Dates: start: 198406, end: 201010

REACTIONS (3)
  - Hepatic cancer stage IV [Unknown]
  - Lung carcinoma cell type unspecified stage IV [Unknown]
  - Brain neoplasm [Unknown]

NARRATIVE: CASE EVENT DATE: 20101101
